FAERS Safety Report 9786132 (Version 1)
Quarter: 2013Q4

REPORT INFORMATION
  Report Type: Spontaneous
  Country: US (occurrence: US)
  Receive Date: 20131227
  Receipt Date: 20131227
  Transmission Date: 20140711
  Serious: No
  Sender: FDA-Public Use
  Company Number: US-BAYER-2013-157907

PATIENT
  Age: 38 Year
  Sex: Female
  Weight: 122 kg

DRUGS (5)
  1. LANTUS [Concomitant]
     Indication: TYPE 2 DIABETES MELLITUS
     Dosage: 10 MG/1000 U, QON
     Dates: start: 201306
  2. LISINOPRIL [Concomitant]
     Indication: BLOOD CHOLESTEROL INCREASED
     Dosage: 10 MG, QD
     Route: 048
     Dates: start: 2010
  3. CLIMARA [Suspect]
     Indication: HORMONE REPLACEMENT THERAPY
     Dosage: 0.1 MG, QD
     Dates: start: 20131025
  4. METFORMIN HYDROCHLORIDE W/PIOGLITAZONE HYDROC [Concomitant]
     Indication: TYPE 2 DIABETES MELLITUS
     Dosage: UNK
     Route: 048
     Dates: start: 2001
  5. EXENATIDE [Concomitant]
     Indication: TYPE 2 DIABETES MELLITUS
     Dosage: 2 MG, OW
     Dates: start: 201309

REACTIONS (5)
  - Mood swings [Not Recovered/Not Resolved]
  - Skin odour abnormal [Not Recovered/Not Resolved]
  - Product physical issue [None]
  - Product adhesion issue [Not Recovered/Not Resolved]
  - Sweat gland disorder [Not Recovered/Not Resolved]
